FAERS Safety Report 9596096 (Version 2)
Quarter: 2013Q4

REPORT INFORMATION
  Report Type: Spontaneous
  Country: US (occurrence: US)
  Receive Date: 20131004
  Receipt Date: 20131014
  Transmission Date: 20140711
  Serious: Yes (Death, Other)
  Sender: FDA-Public Use
  Company Number: US-PFIZER INC-2013280992

PATIENT
  Age: 56 Year
  Sex: Male

DRUGS (2)
  1. VFEND [Suspect]
     Indication: ASPERGILLUS INFECTION
     Dosage: 200 MG, 2X/DAY
     Dates: start: 20120103
  2. VFEND [Suspect]
     Indication: DEVICE RELATED INFECTION

REACTIONS (3)
  - Glioblastoma multiforme [Fatal]
  - Osteomyelitis [Not Recovered/Not Resolved]
  - Metastases to bone [Not Recovered/Not Resolved]
